FAERS Safety Report 26133881 (Version 2)
Quarter: 2025Q4

REPORT INFORMATION
  Report Type: Spontaneous
  Country: EU (occurrence: EU)
  Receive Date: 20251209
  Receipt Date: 20251215
  Transmission Date: 20260117
  Serious: Yes (Other)
  Sender: TEVA
  Company Number: EU-TEVA-VS-3400720

PATIENT
  Age: 39 Year
  Sex: Female

DRUGS (20)
  1. ONDANSETRON [Suspect]
     Active Substance: ONDANSETRON
     Indication: Nausea
     Route: 065
  2. CHLORPROMAZINE [Suspect]
     Active Substance: CHLORPROMAZINE
     Indication: Nausea
     Route: 065
  3. DOCETAXEL [Suspect]
     Active Substance: DOCETAXEL
     Indication: HER2 positive breast cancer
     Dosage: 80 MG/MQ DAY1 W3
     Route: 065
     Dates: start: 201507, end: 201509
  4. PERTUZUMAB [Suspect]
     Active Substance: PERTUZUMAB
     Indication: HER2 positive breast cancer
     Dosage: DAY 1
     Route: 065
     Dates: start: 201507, end: 201509
  5. APREPITANT [Suspect]
     Active Substance: APREPITANT
     Indication: Nausea
     Route: 065
  6. CAPECITABINE [Concomitant]
     Active Substance: CAPECITABINE
     Indication: HER2 positive breast cancer
     Dosage: DAYS 1-14 W
     Route: 048
     Dates: start: 201702, end: 201710
  7. GEMCITABINE [Concomitant]
     Active Substance: GEMCITABINE
     Indication: HER2 positive breast cancer
     Dosage: 1,000 MG/MQ DAY 1, 8 W3
     Route: 065
     Dates: start: 201903, end: 201910
  8. TRASTUZUMAB DERUXTECAN [Suspect]
     Active Substance: TRASTUZUMAB DERUXTECAN
     Indication: HER2 positive breast cancer
     Dosage: W3
     Route: 065
     Dates: start: 201911, end: 202006
  9. TRASTUZUMAB DERUXTECAN [Suspect]
     Active Substance: TRASTUZUMAB DERUXTECAN
     Indication: HER2 positive breast cancer
     Dosage: FROM CYCLES 7 TO 10
     Route: 065
  10. TRASTUZUMAB DERUXTECAN [Suspect]
     Active Substance: TRASTUZUMAB DERUXTECAN
     Indication: HER2 positive breast cancer
     Dosage: 4.4 MG/KG AT CYCLE 6
     Route: 065
  11. TRASTUZUMAB [Suspect]
     Active Substance: TRASTUZUMAB
     Indication: HER2 positive breast cancer
     Dosage: 6 MG/MQ DAY 1
     Route: 065
     Dates: start: 201702, end: 201710
  12. TRASTUZUMAB [Suspect]
     Active Substance: TRASTUZUMAB
     Indication: HER2 positive breast cancer
     Dosage: DAY 1
     Route: 065
     Dates: start: 201507, end: 201509
  13. TRASTUZUMAB [Suspect]
     Active Substance: TRASTUZUMAB
     Indication: HER2 positive breast cancer
     Dosage: W3
     Route: 065
     Dates: start: 201901, end: 201902
  14. TRASTUZUMAB [Suspect]
     Active Substance: TRASTUZUMAB
     Indication: HER2 positive breast cancer
     Dosage: 6 MG/MQ DAY 1
     Route: 065
     Dates: start: 201711, end: 201806
  15. TRASTUZUMAB [Suspect]
     Active Substance: TRASTUZUMAB
     Indication: HER2 positive breast cancer
     Dosage: 3?WEEKLY 6?MG/MQ DAY?1 W3
     Route: 065
     Dates: start: 201806, end: 201901
  16. VINORELBINE [Suspect]
     Active Substance: VINORELBINE TARTRATE
     Indication: HER2 positive breast cancer
     Dosage: 30 MG/MQ DAY 1, 8 W3
     Route: 065
     Dates: start: 201711, end: 201806
  17. ZENOCUTUZUMAB [Suspect]
     Active Substance: ZENOCUTUZUMAB
     Indication: HER2 positive breast cancer
     Route: 065
     Dates: start: 201901, end: 201902
  18. MARGETUXIMAB [Concomitant]
     Active Substance: MARGETUXIMAB
     Indication: HER2 positive breast cancer
     Dosage: DAYS 1
     Route: 065
     Dates: start: 201903, end: 201910
  19. ADO-TRASTUZUMAB EMTANSINE [Suspect]
     Active Substance: ADO-TRASTUZUMAB EMTANSINE
     Indication: HER2 positive breast cancer
     Dosage: DAY 1 W3
     Route: 065
     Dates: start: 201510, end: 201602
  20. ADO-TRASTUZUMAB EMTANSINE [Suspect]
     Active Substance: ADO-TRASTUZUMAB EMTANSINE
     Indication: HER2 positive breast cancer
     Dosage: DAY 1 W3
     Route: 065
     Dates: start: 201609, end: 201701

REACTIONS (3)
  - Drug intolerance [Unknown]
  - Thrombocytopenia [Recovering/Resolving]
  - Drug ineffective [Unknown]
